FAERS Safety Report 16997351 (Version 1)
Quarter: 2019Q4

REPORT INFORMATION
  Report Type: Spontaneous
  Country: US (occurrence: US)
  Receive Date: 20190924
  Receipt Date: 20190924
  Transmission Date: 20200122
  Serious: No
  Sender: FDA-Public Use
  Company Number: None

PATIENT
  Age: 51 Year
  Sex: Female

DRUGS (1)
  1. ORENCIA [Suspect]
     Active Substance: ABATACEPT
     Dosage: ?          OTHER FREQUENCY:UNKNOWN;?
     Route: 058
     Dates: start: 201907

REACTIONS (4)
  - Cranial nerve disorder [None]
  - Metatarsalgia [None]
  - Muscle twitching [None]
  - Therapy cessation [None]

NARRATIVE: CASE EVENT DATE: 20190914
